FAERS Safety Report 16647588 (Version 3)
Quarter: 2019Q3

REPORT INFORMATION
  Report Type: Report from Study
  Country: US (occurrence: US)
  Receive Date: 20190730
  Receipt Date: 20190905
  Transmission Date: 20191004
  Serious: Yes (Other)
  Sender: FDA-Public Use
  Company Number: US-PFIZER INC-2019312061

PATIENT
  Age: 57 Year
  Sex: Male

DRUGS (1)
  1. XELJANZ [Suspect]
     Active Substance: TOFACITINIB CITRATE
     Indication: COLITIS ULCERATIVE
     Dosage: 10 MG, 2X/DAY
     Route: 048
     Dates: start: 20190701

REACTIONS (7)
  - Condition aggravated [Unknown]
  - Abdominal pain [Not Recovered/Not Resolved]
  - Depressed mood [Unknown]
  - Weight decreased [Unknown]
  - Abnormal faeces [Unknown]
  - Rectal haemorrhage [Recovering/Resolving]
  - Change of bowel habit [Unknown]

NARRATIVE: CASE EVENT DATE: 201907
